FAERS Safety Report 5599708-4 (Version None)
Quarter: 2008Q1

REPORT INFORMATION
  Report Type: 
  Country: None (occurrence: None)
  Receive Date: 20080118
  Receipt Date: 20080118
  Transmission Date: 20080703
  Serious: Yes (Hospitalization)
  Sender: FDA-Public Use
  Company Number: None

PATIENT
  Age: 49 Year
  Sex: Female

DRUGS (9)
  1. ACETAMINOPHEN [Suspect]
     Indication: PAIN
     Dosage: ~ 5 GM PO IN 6 HRS
     Route: 048
     Dates: start: 20071217
  2. PLAQUENIL [Concomitant]
  3. M.V.I. [Concomitant]
  4. PROPRANOLOL [Concomitant]
  5. HYDROCHLOROTHIAZIDE [Concomitant]
  6. OSCAL [Concomitant]
  7. LOVENOX [Concomitant]
  8. COLACE [Concomitant]
  9. VITAMIN B-12 [Concomitant]

REACTIONS (3)
  - ASPARTATE AMINOTRANSFERASE INCREASED [None]
  - DRUG LEVEL INCREASED [None]
  - INCORRECT DOSE ADMINISTERED [None]
